FAERS Safety Report 7477185-6 (Version None)
Quarter: 2011Q2

REPORT INFORMATION
  Report Type: 
  Country: None (occurrence: None)
  Receive Date: 20110512
  Receipt Date: 20110301
  Transmission Date: 20111010
  Serious: No
  Sender: FDA-Public Use
  Company Number: US-NOVEN-11US001897

PATIENT
  Sex: Male

DRUGS (1)
  1. DAYTRANA [Suspect]
     Indication: ATTENTION DEFICIT/HYPERACTIVITY DISORDER
     Dosage: 30 MG, QD
     Route: 062
     Dates: end: 20110201

REACTIONS (7)
  - DISTURBANCE IN ATTENTION [None]
  - DEPRESSION [None]
  - NEGATIVISM [None]
  - MOOD SWINGS [None]
  - DRUG DOSE OMISSION [None]
  - SPEECH DISORDER [None]
  - IMPULSE-CONTROL DISORDER [None]
